FAERS Safety Report 25507662 (Version 2)
Quarter: 2025Q3

REPORT INFORMATION
  Report Type: Spontaneous
  Country: JP (occurrence: JP)
  Receive Date: 20250703
  Receipt Date: 20250909
  Transmission Date: 20251020
  Serious: Yes (Other)
  Sender: ROCHE
  Company Number: JP-CHUGAI-2025020675

PATIENT
  Age: 11 Year
  Sex: Male

DRUGS (1)
  1. TAMIFLU [Suspect]
     Active Substance: OSELTAMIVIR PHOSPHATE
     Indication: Influenza
     Route: 048

REACTIONS (4)
  - Pulmonary contusion [Unknown]
  - Pneumothorax [Unknown]
  - Fall [Unknown]
  - Epistaxis [Unknown]
